FAERS Safety Report 10308007 (Version 4)
Quarter: 2015Q2

REPORT INFORMATION
  Report Type: Spontaneous
  Country: US (occurrence: US)
  Receive Date: 20140716
  Receipt Date: 20150420
  Transmission Date: 20150821
  Serious: Yes (Hospitalization)
  Sender: FDA-Public Use
  Company Number: US-BAYER-2014-106641

PATIENT
  Age: 23 Year
  Sex: Female
  Weight: 67.12 kg

DRUGS (1)
  1. MIRENA [Suspect]
     Active Substance: LEVONORGESTREL
     Indication: CONTRACEPTION
     Dosage: 20 MCG/24HR, CONT
     Route: 015
     Dates: start: 20090302, end: 20131213

REACTIONS (10)
  - Post procedural discomfort [None]
  - Injury [None]
  - Medical device pain [None]
  - Procedural pain [Not Recovered/Not Resolved]
  - Uterine perforation [None]
  - Depression [None]
  - Drug ineffective [None]
  - Emotional distress [None]
  - Pregnancy with contraceptive device [None]
  - Abdominal pain lower [None]

NARRATIVE: CASE EVENT DATE: 2012
